FAERS Safety Report 5130137-3 (Version None)
Quarter: 2006Q4

REPORT INFORMATION
  Report Type: 
  Country: None (occurrence: None)
  Receive Date: 20061013
  Receipt Date: 20061002
  Transmission Date: 20070319
  Serious: Yes (Death)
  Sender: FDA-Public Use
  Company Number: US200610000171

PATIENT
  Sex: Male

DRUGS (1)
  1. ZYPREXA [Suspect]
     Indication: SCHIZOPHRENIA, PARANOID TYPE
     Dates: start: 19980101

REACTIONS (2)
  - ACUTE MYOCARDIAL INFARCTION [None]
  - DIABETES MELLITUS NON-INSULIN-DEPENDENT [None]
